FAERS Safety Report 16865164 (Version 1)
Quarter: 2019Q3

REPORT INFORMATION
  Report Type: Spontaneous
  Country: US (occurrence: US)
  Receive Date: 20190930
  Receipt Date: 20190930
  Transmission Date: 20191005
  Serious: Yes (Hospitalization)
  Sender: FDA-Public Use
  Company Number: US-JNJFOC-20190925646

PATIENT
  Age: 20 Year
  Sex: Male

DRUGS (1)
  1. IBUPROFEN. [Suspect]
     Active Substance: IBUPROFEN
     Indication: PRODUCT USED FOR UNKNOWN INDICATION
     Dosage: ADDITIONAL INFO: OVERDOSE
     Route: 048

REACTIONS (9)
  - Restlessness [Unknown]
  - Intentional overdose [Unknown]
  - Suicide attempt [Unknown]
  - Abdominal pain [Unknown]
  - Nausea [Unknown]
  - Affective disorder [Unknown]
  - Vomiting [Unknown]
  - Aggression [Unknown]
  - Agitation [Unknown]
